FAERS Safety Report 24539812 (Version 1)
Quarter: 2024Q4

REPORT INFORMATION
  Report Type: Spontaneous
  Country: GB (occurrence: GB)
  Receive Date: 20241023
  Receipt Date: 20241023
  Transmission Date: 20250115
  Serious: Yes (Other)
  Sender: SANDOZ
  Company Number: GB-NOVPHSZ-PHHY2019GB167277

PATIENT
  Age: 47 Year
  Sex: Female
  Weight: 46.26 kg

DRUGS (7)
  1. DOXYCYCLINE HYCLATE [Suspect]
     Active Substance: DOXYCYCLINE HYCLATE
     Dosage: 100 MG, QD (TWICE DAILY, REDUCED TO ONCE DAILY AT NIGHT, THEN STOPPED)
     Route: 048
     Dates: end: 20190614
  2. DOXYCYCLINE HYCLATE [Suspect]
     Active Substance: DOXYCYCLINE HYCLATE
     Indication: Meibomian gland dysfunction
     Dosage: 200 MG, BID (TWICE DAILY, REDUCED TO ONCE DAILY, THEN STOPPED)
     Route: 048
     Dates: start: 20190610
  3. CHLORAMPHENICOL [Concomitant]
     Active Substance: CHLORAMPHENICOL
     Indication: Product used for unknown indication
     Dosage: UNK, PILL (EXCEPT TABLETS)
     Route: 047
  4. DYDROGESTERONE\ESTRADIOL [Concomitant]
     Active Substance: DYDROGESTERONE\ESTRADIOL
     Indication: Product used for unknown indication
     Dosage: 1/10
     Route: 065
  5. HYLO TEAR [Concomitant]
     Indication: Product used for unknown indication
     Dosage: UNK
     Route: 065
  6. LEVOTHYROXINE [Concomitant]
     Active Substance: LEVOTHYROXINE
     Indication: Product used for unknown indication
     Dosage: UNK
     Route: 065
  7. SUMATRIPTAN [Concomitant]
     Active Substance: SUMATRIPTAN
     Indication: Product used for unknown indication
     Dosage: UNK
     Route: 045

REACTIONS (3)
  - Migraine [Recovered/Resolved]
  - Diarrhoea [Recovered/Resolved]
  - Vomiting [Recovered/Resolved]

NARRATIVE: CASE EVENT DATE: 20190611
